FAERS Safety Report 6519083-8 (Version None)
Quarter: 2009Q4

REPORT INFORMATION
  Report Type: 
  Country: None (occurrence: None)
  Receive Date: 20091228
  Receipt Date: 20091222
  Transmission Date: 20100525
  Serious: Yes (Death)
  Sender: FDA-Public Use
  Company Number: US-ASTRAZENECA-2009SE33150

PATIENT
  Sex: Male

DRUGS (3)
  1. NEXIUM [Suspect]
     Route: 048
  2. SEROQUEL [Suspect]
     Route: 048
  3. SYMBICORT [Suspect]
     Dosage: 160/4.5 MICROGRAM
     Route: 055

REACTIONS (1)
  - DEATH [None]
